FAERS Safety Report 13334657 (Version 1)
Quarter: 2017Q1

REPORT INFORMATION
  Report Type: Spontaneous
  Country: US (occurrence: US)
  Receive Date: 20170314
  Receipt Date: 20170314
  Transmission Date: 20170428
  Serious: No
  Sender: FDA-Public Use
  Company Number: US-009507513-1703USA006330

PATIENT
  Age: 55 Year
  Sex: Female

DRUGS (2)
  1. KEYTRUDA [Suspect]
     Active Substance: PEMBROLIZUMAB
     Indication: GLIOBLASTOMA MULTIFORME
     Dosage: UNK
  2. HYDROXYUREA. [Concomitant]
     Active Substance: HYDROXYUREA
     Indication: GLIOBLASTOMA MULTIFORME
     Dosage: UNK

REACTIONS (1)
  - Product use issue [Unknown]
